FAERS Safety Report 13927147 (Version 1)
Quarter: 2017Q3

REPORT INFORMATION
  Report Type: Spontaneous
  Country: US (occurrence: US)
  Receive Date: 20170831
  Receipt Date: 20170831
  Transmission Date: 20171127
  Serious: Yes (Life-Threatening, Hospitalization, Disabling, Other)
  Sender: FDA-Public Use
  Company Number: None

PATIENT
  Age: 37 Year
  Sex: Female
  Weight: 72 kg

DRUGS (5)
  1. VITAMIN E [Concomitant]
     Active Substance: .ALPHA.-TOCOPHEROL
  2. MAGNESIUM [Concomitant]
     Active Substance: MAGNESIUM
  3. DEXILANT [Concomitant]
     Active Substance: DEXLANSOPRAZOLE
  4. OMNIPAQUE [Suspect]
     Active Substance: IOHEXOL
  5. FISH OIL [Concomitant]
     Active Substance: FISH OIL

REACTIONS (7)
  - Seizure [None]
  - Anaphylactic reaction [None]
  - Transient ischaemic attack [None]
  - Vascular pain [None]
  - Toxicity to various agents [None]
  - Pain [None]
  - Vein disorder [None]

NARRATIVE: CASE EVENT DATE: 20170402
